FAERS Safety Report 4366341-1 (Version None)
Quarter: 2004Q2

REPORT INFORMATION
  Report Type: 
  Country: None (occurrence: None)
  Receive Date: 20040527
  Receipt Date: 20031006
  Transmission Date: 20050107
  Serious: No
  Sender: FDA-Public Use
  Company Number: US-GLAXOSMITHKLINE-A0429010A

PATIENT
  Age: 2 Year
  Sex: Male

DRUGS (2)
  1. ALBUTEROL [Suspect]
     Indication: ILL-DEFINED DISORDER
     Route: 055
  2. PULMICORT [Suspect]
     Indication: ILL-DEFINED DISORDER

REACTIONS (1)
  - MOOD ALTERED [None]
